FAERS Safety Report 8478109-5 (Version None)
Quarter: 2012Q2

REPORT INFORMATION
  Report Type: 
  Country: None (occurrence: None)
  Receive Date: 20120629
  Receipt Date: 20120625
  Transmission Date: 20120825
  Serious: Yes (Other)
  Sender: FDA-Public Use
  Company Number: US-PFIZER INC-2012105363

PATIENT
  Sex: Female
  Weight: 57 kg

DRUGS (9)
  1. LISINOPRIL AND HYDROCHLOROTHIAZIDE [Concomitant]
     Indication: HYPERTENSION
     Dosage: 10/12.5 MG, DAILY
  2. PREMARIN [Concomitant]
     Dosage: 0.625 MG, 1X/DAY
  3. XANAX [Concomitant]
     Indication: ANXIETY
     Dosage: 0.25 MG, ONCE AT NIGHT
     Dates: start: 19970101
  4. PRINZIDE [Concomitant]
     Dosage: 10/12.5 MG, DAILY
  5. LYRICA [Suspect]
     Indication: NEUROPATHY PERIPHERAL
  6. LYRICA [Suspect]
     Indication: PERINEURIAL CYST
     Dosage: 75 MG, 3X/DAY
     Route: 048
     Dates: start: 20060501
  7. ZANTAC [Concomitant]
     Dosage: 300 MG, ONCE AT NIGHT
  8. ATENOLOL [Concomitant]
     Indication: HYPERTENSION
     Dosage: 25 MG, 1X/DAY
  9. PROTONIX [Concomitant]
     Dosage: 40 MG, 2X/DAY

REACTIONS (2)
  - TOOTH DISORDER [None]
  - DENTAL CARIES [None]
